FAERS Safety Report 7607485-8 (Version None)
Quarter: 2011Q3

REPORT INFORMATION
  Report Type: 
  Country: None (occurrence: None)
  Receive Date: 20110713
  Receipt Date: 20110706
  Transmission Date: 20111222
  Serious: Yes (Other)
  Sender: FDA-Public Use
  Company Number: US-US-EMD SERONO, INC.-7069642

PATIENT
  Sex: Female

DRUGS (3)
  1. REBIF [Suspect]
     Indication: MULTIPLE SCLEROSIS
     Route: 058
     Dates: start: 20050729
  2. PAIN MEDICATION [Concomitant]
     Indication: NECK PAIN
  3. PAIN MEDICATION [Concomitant]
     Indication: PAIN

REACTIONS (4)
  - COELIAC DISEASE [None]
  - SHOULDER OPERATION [None]
  - MULTIPLE SCLEROSIS RELAPSE [None]
  - DEPRESSED MOOD [None]
